FAERS Safety Report 5238244-1 (Version None)
Quarter: 2007Q1

REPORT INFORMATION
  Report Type: 
  Country: None (occurrence: None)
  Receive Date: 20070215
  Receipt Date: 20070206
  Transmission Date: 20070707
  Serious: Yes (Hospitalization)
  Sender: FDA-Public Use
  Company Number: GB-AVENTIS-200315626GDDC

PATIENT
  Age: 56 Year
  Sex: Female
  Weight: 78.5 kg

DRUGS (9)
  1. DOCETAXEL [Suspect]
     Route: 042
     Dates: start: 20030527, end: 20030527
  2. DOCETAXEL [Suspect]
  3. CARBOPLATIN [Suspect]
     Dosage: DOSE: AUC 5
     Route: 042
     Dates: start: 20030527, end: 20030527
  4. CARBOPLATIN [Suspect]
  5. TARCEVA                            /01611401/ [Suspect]
     Route: 048
     Dates: start: 20030520, end: 20030531
  6. SOTALOL HCL [Concomitant]
     Indication: ATRIAL TACHYCARDIA
     Route: 048
  7. LANSOPRAZOLE [Concomitant]
     Indication: GASTRIC ULCER
     Route: 048
  8. WARFARIN SODIUM [Concomitant]
     Route: 048
     Dates: start: 20030527
  9. ASPIRIN [Concomitant]
     Route: 048
     Dates: end: 20030526

REACTIONS (8)
  - ABDOMINAL PAIN [None]
  - DIARRHOEA [None]
  - DIZZINESS [None]
  - NAUSEA [None]
  - NEUTROPENIA [None]
  - PYREXIA [None]
  - RASH [None]
  - VOMITING [None]
